FAERS Safety Report 21909154 (Version 1)
Quarter: 2023Q1

REPORT INFORMATION
  Report Type: Spontaneous
  Country: US (occurrence: None)
  Receive Date: 20230124
  Receipt Date: 20230124
  Transmission Date: 20230418
  Serious: Yes (Hospitalization)
  Sender: FDA-Public Use
  Company Number: None

PATIENT
  Sex: Male

DRUGS (14)
  1. LENALIDOMIDE [Suspect]
     Active Substance: LENALIDOMIDE
     Indication: Plasma cell myeloma
     Dosage: 25 MG ORAL??TAKE 1 CAPSULE BY MOUTH ONCE DAILY ON DAYS 1-14 EVERY 21 DAY CYCLE. TAKE WITH OR WITHOUT
     Route: 048
     Dates: start: 20221202
  2. ACYCLOVIR TAB [Concomitant]
  3. ALBUTEROL AER HFA [Concomitant]
  4. ATOVAQUONE SUS [Concomitant]
  5. DARZALEX SOL [Concomitant]
  6. DEXAMETHASON TAB [Concomitant]
  7. METHYLPRED TAB [Concomitant]
  8. MOMETASONE SOL [Concomitant]
  9. PREDNISONE [Concomitant]
     Active Substance: PREDNISONE
  10. REVLIMID CAP [Concomitant]
  11. ROSUVASTATIN [Concomitant]
     Active Substance: ROSUVASTATIN
  12. TAMSULOSIN [Concomitant]
     Active Substance: TAMSULOSIN
  13. TRAMADOL HCL TAB [Concomitant]
  14. VELCADE INJ [Concomitant]

REACTIONS (1)
  - Hospitalisation [None]
